FAERS Safety Report 4878049-4 (Version None)
Quarter: 2006Q1

REPORT INFORMATION
  Report Type: 
  Country: None (occurrence: None)
  Receive Date: 20060110
  Receipt Date: 20051228
  Transmission Date: 20060701
  Serious: Yes (Hospitalization, Other)
  Sender: FDA-Public Use
  Company Number: 2006000276

PATIENT
  Age: 47 Year
  Sex: Female
  Weight: 54.4316 kg

DRUGS (5)
  1. ELLENCE [Suspect]
     Indication: BREAST CANCER
     Dosage: 100 MG/M2 (100 MG/M2, CYCLIC INTERVAL:  EVERY 3 WEEKS), INTRAVENOUS
     Route: 042
     Dates: start: 20051208
  2. FLUOROURACIL [Concomitant]
  3. CYTOXAN [Concomitant]
  4. ALOXI (PALONOSETRON) [Concomitant]
  5. DECADRON [Concomitant]

REACTIONS (2)
  - BACK PAIN [None]
  - MUSCLE SPASMS [None]
